FAERS Safety Report 24986002 (Version 2)
Quarter: 2025Q1

REPORT INFORMATION
  Report Type: Report from Study
  Country: CA (occurrence: CA)
  Receive Date: 20250219
  Receipt Date: 20250307
  Transmission Date: 20250409
  Serious: Yes (Other)
  Sender: JOHNSON AND JOHNSON
  Company Number: CA-JNJFOC-20250230381

PATIENT
  Age: 32 Year
  Sex: Female

DRUGS (1)
  1. REMICADE [Suspect]
     Active Substance: INFLIXIMAB
     Indication: Hidradenitis
     Route: 041
     Dates: start: 20180614

REACTIONS (5)
  - Respiratory syncytial virus infection [Recovered/Resolved]
  - Hidradenitis [Not Recovered/Not Resolved]
  - Pneumonia bacterial [Recovered/Resolved]
  - Decreased appetite [Not Recovered/Not Resolved]
  - Sinusitis bacterial [Recovered/Resolved]

NARRATIVE: CASE EVENT DATE: 20250208
